FAERS Safety Report 4956441-7 (Version None)
Quarter: 2006Q1

REPORT INFORMATION
  Report Type: 
  Country: None (occurrence: None)
  Receive Date: 20060328
  Receipt Date: 20060328
  Transmission Date: 20060701
  Serious: Yes (Hospitalization)
  Sender: FDA-Public Use
  Company Number: None

PATIENT
  Age: 75 Year
  Sex: Male
  Weight: 93.8946 kg

DRUGS (13)
  1. WARFARIN SODIUM [Suspect]
     Indication: ATRIAL FIBRILLATION
     Dosage: 5 MG PO DAILY
     Route: 048
     Dates: start: 20021201
  2. ASPIRIN [Suspect]
     Indication: ATRIAL FIBRILLATION
     Dosage: 81 MG PO DAY
     Route: 048
     Dates: start: 20021201
  3. PRANDIN [Concomitant]
  4. TARKY [Concomitant]
  5. PRAVACHOL [Concomitant]
  6. DIOVAN [Concomitant]
  7. FUROSEMIDE [Concomitant]
  8. M.V.I. [Concomitant]
  9. FOLATE [Concomitant]
  10. B-100 [Concomitant]
  11. PLETAL [Concomitant]
  12. COUMADIN [Concomitant]
  13. PRILOSEC [Concomitant]

REACTIONS (7)
  - ARTERIOVENOUS MALFORMATION [None]
  - ASTHENIA [None]
  - DIZZINESS [None]
  - FAECES DISCOLOURED [None]
  - GASTRITIS EROSIVE [None]
  - HAEMATOCRIT DECREASED [None]
  - UPPER GASTROINTESTINAL HAEMORRHAGE [None]
